FAERS Safety Report 7624231-2 (Version None)
Quarter: 2011Q3

REPORT INFORMATION
  Report Type: 
  Country: None (occurrence: None)
  Receive Date: 20110720
  Receipt Date: 20110713
  Transmission Date: 20111222
  Serious: Yes (Hospitalization, Other)
  Sender: FDA-Public Use
  Company Number: US-BRISTOL-MYERS SQUIBB COMPANY-15899784

PATIENT
  Age: 81 Year
  Sex: Female
  Weight: 49 kg

DRUGS (1)
  1. COUMADIN [Suspect]

REACTIONS (5)
  - PROTHROMBIN TIME ABNORMAL [None]
  - AORTIC VALVE DISEASE [None]
  - CARDIAC FAILURE CONGESTIVE [None]
  - CEREBROVASCULAR ACCIDENT [None]
  - MYOCARDIAL INFARCTION [None]
